FAERS Safety Report 13921114 (Version 1)
Quarter: 2017Q3

REPORT INFORMATION
  Report Type: Spontaneous
  Country: CH (occurrence: CH)
  Receive Date: 20170830
  Receipt Date: 20170830
  Transmission Date: 20171127
  Serious: Yes (Other)
  Sender: FDA-Public Use
  Company Number: CH-LPDUSPRD-20171188

PATIENT
  Sex: Male

DRUGS (1)
  1. FERINJECT [Suspect]
     Active Substance: FERRIC CARBOXYMALTOSE
     Dosage: 2 TOTAL, UNKNOWN
     Route: 041

REACTIONS (4)
  - Bronchospasm [Unknown]
  - Shock [Unknown]
  - Loss of consciousness [Unknown]
  - Urticaria [Unknown]
